FAERS Safety Report 13642388 (Version 1)
Quarter: 2017Q2

REPORT INFORMATION
  Report Type: Spontaneous
  Country: BR (occurrence: BR)
  Receive Date: 20170612
  Receipt Date: 20170612
  Transmission Date: 20170830
  Serious: Yes (Other)
  Sender: FDA-Public Use
  Company Number: BR-GLAXOSMITHKLINE-BR2017GSK088597

PATIENT
  Sex: Female

DRUGS (2)
  1. AVAMYS [Suspect]
     Active Substance: FLUTICASONE FUROATE
     Indication: EYELID OPERATION
  2. AVAMYS [Suspect]
     Active Substance: FLUTICASONE FUROATE
     Indication: RHINOPLASTY
     Dosage: UNK, BID
     Dates: start: 20170603

REACTIONS (7)
  - Eyelid irritation [Recovered/Resolved]
  - Angioedema [Recovered/Resolved]
  - Overdose [Recovered/Resolved]
  - Ocular discomfort [Recovered/Resolved]
  - Product use in unapproved indication [Recovered/Resolved]
  - Nasal discomfort [Recovered/Resolved]
  - Swelling [Recovered/Resolved]
